FAERS Safety Report 5161008-4 (Version None)
Quarter: 2006Q4

REPORT INFORMATION
  Report Type: 
  Country: None (occurrence: None)
  Receive Date: 20061121
  Receipt Date: 20061106
  Transmission Date: 20070319
  Serious: Yes (Hospitalization)
  Sender: FDA-Public Use
  Company Number: 6027130

PATIENT
  Age: 76 Year
  Sex: Female

DRUGS (6)
  1. LEVOTHYROXINE SODIUM [Suspect]
     Indication: DRUG USE FOR UNKNOWN INDICATION
     Dosage: 150 MCG (150 MCG, 1D)
     Route: 048
  2. ATARAX [Suspect]
     Indication: DRUG USE FOR UNKNOWN INDICATION
     Dosage: 100 MG (100 MG,1 D)
     Route: 048
  3. AUGMENTIN (SOLUTION FOR INJECTION) (AMOXICILLIN SODIUM, CLAVULANATE PO [Suspect]
     Indication: LUNG DISORDER
     Route: 042
     Dates: start: 20060603, end: 20060605
  4. NOVORAPID                   (INSULIN ASPART) [Suspect]
     Indication: DRUG USE FOR UNKNOWN INDICATION
     Route: 058
  5. NOVOMIX        (INSULIN ASPART) [Suspect]
     Indication: DRUG USE FOR UNKNOWN INDICATION
     Route: 058
  6. SORIATANE [Suspect]
     Indication: PSORIASIS
     Route: 048

REACTIONS (14)
  - BLOOD ALKALINE PHOSPHATASE INCREASED [None]
  - BLOOD PRESSURE DIASTOLIC DECREASED [None]
  - BODY MASS INDEX INCREASED [None]
  - CHOLESTASIS [None]
  - CREATINE PHOSPHOKINASE DECREASED [None]
  - DIABETES MELLITUS INADEQUATE CONTROL [None]
  - FALL [None]
  - LUNG DISORDER [None]
  - MALAISE [None]
  - PRURITUS [None]
  - PSORIASIS [None]
  - RASH ERYTHEMATOUS [None]
  - RENAL FAILURE [None]
  - SYNCOPE [None]
